FAERS Safety Report 17473719 (Version 1)
Quarter: 2020Q1

REPORT INFORMATION
  Report Type: Spontaneous
  Country: TH (occurrence: TH)
  Receive Date: 20200228
  Receipt Date: 20200228
  Transmission Date: 20200409
  Serious: Yes (Hospitalization)
  Sender: FDA-Public Use
  Company Number: TH-JNJFOC-20190718191

PATIENT
  Age: 25 Year
  Sex: Male

DRUGS (1)
  1. STELARA [Suspect]
     Active Substance: USTEKINUMAB
     Indication: CROHN^S DISEASE
     Dosage: DRUG STARTED FROM MID OF JUNE/2019
     Route: 058
     Dates: start: 201906

REACTIONS (1)
  - Large intestine infection [Recovered/Resolved]

NARRATIVE: CASE EVENT DATE: 201906
